FAERS Safety Report 4518828-6 (Version None)
Quarter: 2004Q4

REPORT INFORMATION
  Report Type: 
  Country: None (occurrence: None)
  Receive Date: 20041206
  Receipt Date: 20041123
  Transmission Date: 20050328
  Serious: Yes (Hospitalization)
  Sender: FDA-Public Use
  Company Number: US-JNJFOC-20041106349

PATIENT
  Sex: Male
  Weight: 79.38 kg

DRUGS (1)
  1. REMICADE [Suspect]
     Indication: UNEVALUABLE EVENT
     Route: 042
     Dates: end: 20040801

REACTIONS (1)
  - SURGERY [None]
